FAERS Safety Report 19839631 (Version 1)
Quarter: 2021Q3

REPORT INFORMATION
  Report Type: Spontaneous
  Country: US (occurrence: US)
  Receive Date: 20210916
  Receipt Date: 20210916
  Transmission Date: 20211014
  Serious: No
  Sender: FDA-Public Use
  Company Number: US-BSC-202000235

PATIENT
  Sex: Female

DRUGS (2)
  1. VARITHENA [Suspect]
     Active Substance: POLIDOCANOL
     Dosage: RIGHT LEG
  2. VARITHENA [Suspect]
     Active Substance: POLIDOCANOL
     Dosage: LEFT LEG

REACTIONS (2)
  - Onychomadesis [Recovered/Resolved]
  - Nail discolouration [Recovered/Resolved]
